FAERS Safety Report 7832802-3 (Version None)
Quarter: 2011Q4

REPORT INFORMATION
  Report Type: 
  Country: None (occurrence: None)
  Receive Date: 20111024
  Receipt Date: 20111019
  Transmission Date: 20120403
  Serious: No
  Sender: FDA-Public Use
  Company Number: US-BIOGENIDEC-2011BI040032

PATIENT
  Age: 41 Year
  Sex: Male

DRUGS (2)
  1. TYSABRI [Suspect]
     Indication: MULTIPLE SCLEROSIS
     Route: 042
     Dates: start: 20100819, end: 20110823
  2. TYSABRI [Suspect]
     Route: 042
     Dates: start: 20070709, end: 20080728

REACTIONS (2)
  - MOBILITY DECREASED [None]
  - MUSCULAR WEAKNESS [None]
